FAERS Safety Report 12902430 (Version 3)
Quarter: 2016Q4

REPORT INFORMATION
  Report Type: Report from Study
  Country: CO (occurrence: CO)
  Receive Date: 20161102
  Receipt Date: 20161125
  Transmission Date: 20170207
  Serious: Yes (Death, Hospitalization)
  Sender: FDA-Public Use
  Company Number: CO-ACTELION-A-CH2016-144388

PATIENT
  Age: 11 Year
  Sex: Female

DRUGS (1)
  1. TRACLEER [Suspect]
     Active Substance: BOSENTAN
     Indication: PULMONARY ARTERIAL HYPERTENSION
     Dosage: 32.5 MG, Q12HRS
     Route: 048
     Dates: start: 20160420, end: 20161027

REACTIONS (6)
  - Mouth haemorrhage [Fatal]
  - Cardiac arrest [Fatal]
  - Respiratory arrest [Fatal]
  - Acute myeloid leukaemia recurrent [Fatal]
  - Platelet count decreased [Fatal]
  - Thrombocytopenia [Fatal]

NARRATIVE: CASE EVENT DATE: 20160919
